FAERS Safety Report 5535561-2 (Version None)
Quarter: 2007Q4

REPORT INFORMATION
  Report Type: 
  Country: None (occurrence: None)
  Receive Date: 20071206
  Receipt Date: 20071128
  Transmission Date: 20080405
  Serious: Yes (Death, Hospitalization)
  Sender: FDA-Public Use
  Company Number: ES-BAYER-200711625GDS

PATIENT
  Age: 49 Year
  Sex: Male
  Weight: 66 kg

DRUGS (22)
  1. SORAFENIB [Suspect]
     Indication: RENAL CELL CARCINOMA STAGE UNSPECIFIED
     Route: 048
     Dates: start: 20061122, end: 20070313
  2. SORAFENIB [Suspect]
     Route: 048
     Dates: start: 20070614, end: 20070621
  3. SORAFENIB [Suspect]
     Route: 048
     Dates: start: 20070622, end: 20070920
  4. SORAFENIB [Suspect]
     Route: 048
     Dates: start: 20070328, end: 20070602
  5. DIOVAN HCT [Concomitant]
     Indication: HYPERTENSION
     Route: 048
  6. ADIRO [Concomitant]
     Indication: PLATELET AGGREGATION INHIBITION
     Route: 048
     Dates: start: 20070301
  7. PLAVIX [Concomitant]
     Indication: PLATELET AGGREGATION INHIBITION
     Route: 048
     Dates: start: 20070602, end: 20070702
  8. PLAVIX [Concomitant]
     Route: 048
     Dates: start: 20070301, end: 20070401
  9. NITRODERM [Concomitant]
     Indication: ISCHAEMIC HEART DISEASE PROPHYLAXIS
     Route: 062
     Dates: start: 20070301
  10. EMCONCOR [Concomitant]
     Indication: CARDIAC FAILURE
     Route: 048
     Dates: start: 20070301
  11. MASDIL [Concomitant]
     Indication: ISCHAEMIC HEART DISEASE PROPHYLAXIS
     Route: 048
     Dates: start: 20070301
  12. TRANXILIUM [Concomitant]
     Indication: ANXIETY
     Route: 048
     Dates: start: 20070301
  13. OMEPRAZOLE [Concomitant]
     Indication: PROPHYLAXIS AGAINST GASTROINTESTINAL ULCER
     Route: 048
     Dates: start: 20070301
  14. CREMA DE MAGNESIO [Concomitant]
     Indication: PROPHYLAXIS
     Route: 048
     Dates: start: 20070301
  15. AUGMENTIN '125' [Concomitant]
     Indication: ANTIBIOTIC PROPHYLAXIS
     Route: 048
     Dates: start: 20070306, end: 20070324
  16. TENORMIN [Concomitant]
     Indication: HYPERTENSION
     Route: 048
  17. ENALAPRIL [Concomitant]
     Indication: HYPERTENSION
     Route: 048
     Dates: start: 20070531
  18. AMLODIPINO [Concomitant]
     Indication: HYPERTENSION
     Route: 048
  19. UNIKET [Concomitant]
     Indication: DRUG USE FOR UNKNOWN INDICATION
     Route: 048
     Dates: start: 20070602
  20. ACOVIL [Concomitant]
     Indication: HYPERTENSION
     Route: 048
     Dates: start: 20070602
  21. SIMVASTATIN [Concomitant]
     Indication: DRUG USE FOR UNKNOWN INDICATION
     Route: 048
     Dates: start: 20070602
  22. TRANXILIUM [Concomitant]
     Route: 048

REACTIONS (2)
  - ACUTE MYOCARDIAL INFARCTION [None]
  - ANGINA PECTORIS [None]
